FAERS Safety Report 4282861-2 (Version None)
Quarter: 2004Q1

REPORT INFORMATION
  Report Type: 
  Country: None (occurrence: None)
  Receive Date: 20040130
  Receipt Date: 20030716
  Transmission Date: 20041129
  Serious: No
  Sender: FDA-Public Use
  Company Number: US-BRISTOL-MYERS SQUIBB COMPANY-12328050

PATIENT
  Age: 49 Year
  Sex: Female
  Weight: 58 kg

DRUGS (8)
  1. SERZONE [Suspect]
     Indication: ANXIETY
     Dosage: 50MG ONCE DAILY 1ST WK,100MG ONCE DAILY 2ND WK,100MG ONCE DAILY 3RD WK., 200MG ONCE DAILY 2 WKS
     Route: 048
     Dates: start: 20030601
  2. PROGESTERONE [Concomitant]
  3. XANAX [Concomitant]
  4. BUSPAR [Concomitant]
  5. MULTI-VITAMIN [Concomitant]
  6. VITAMIN C [Concomitant]
  7. CAROTENE [Concomitant]
  8. FLAVONOID [Concomitant]

REACTIONS (1)
  - MENSTRUATION IRREGULAR [None]
